FAERS Safety Report 19002722 (Version 1)
Quarter: 2021Q1

REPORT INFORMATION
  Report Type: Spontaneous
  Country: US (occurrence: US)
  Receive Date: 20210312
  Receipt Date: 20210312
  Transmission Date: 20210420
  Serious: Yes (Life-Threatening)
  Sender: FDA-Public Use
  Company Number: None

PATIENT
  Age: 32 Year
  Sex: Female
  Weight: 77.11 kg

DRUGS (2)
  1. BUPRENORPHINE. [Suspect]
     Active Substance: BUPRENORPHINE
  2. BUPRENORPHINE 8?NG TABLET [Concomitant]
     Dates: start: 20200510

REACTIONS (4)
  - Product solubility abnormal [None]
  - Maternal exposure during pregnancy [None]
  - Drug ineffective [None]
  - Pregnancy [None]

NARRATIVE: CASE EVENT DATE: 20210120
